FAERS Safety Report 19441502 (Version 2)
Quarter: 2021Q3

REPORT INFORMATION
  Report Type: Report from Study
  Country: TH (occurrence: TH)
  Receive Date: 20210621
  Receipt Date: 20210722
  Transmission Date: 20211014
  Serious: Yes (Other)
  Sender: FDA-Public Use
  Company Number: TH-ASTELLAS-2021US022127

PATIENT
  Age: 33 Year
  Sex: Male

DRUGS (9)
  1. MOXIFLOXACIN. [Concomitant]
     Active Substance: MOXIFLOXACIN
     Indication: PRODUCT USED FOR UNKNOWN INDICATION
     Dosage: UNK UNK, UNKNOWN FREQ.
     Route: 065
  2. NATAMYCIN [Concomitant]
     Active Substance: NATAMYCIN
     Indication: PRODUCT USED FOR UNKNOWN INDICATION
     Dosage: UNK UNK, UNKNOWN FREQ.
     Route: 065
  3. ITRACONAZOLE. [Concomitant]
     Active Substance: ITRACONAZOLE
     Indication: PRODUCT USED FOR UNKNOWN INDICATION
     Dosage: UNK UNK, UNKNOWN FREQ.
     Route: 065
  4. AMPHOTERICIN B, LIPOSOME [Suspect]
     Active Substance: AMPHOTERICIN B
     Indication: KERATITIS
     Dosage: UNK UNK, UNKNOWN FREQ.
     Route: 050
  5. AMPHOTERICIN B, LIPOSOME [Suspect]
     Active Substance: AMPHOTERICIN B
     Dosage: UNK UNK, UNKNOWN FREQ.
     Route: 026
  6. AMPHOTERICIN B, LIPOSOME [Suspect]
     Active Substance: AMPHOTERICIN B
     Route: 050
  7. FLUCONAZOLE. [Concomitant]
     Active Substance: FLUCONAZOLE
     Indication: PRODUCT USED FOR UNKNOWN INDICATION
     Dosage: UNK UNK, UNKNOWN FREQ.
     Route: 065
  8. AMPHOTERICIN B, LIPOSOME [Suspect]
     Active Substance: AMPHOTERICIN B
     Route: 026
  9. AMPHOTERICIN B. [Suspect]
     Active Substance: AMPHOTERICIN B
     Indication: KERATITIS
     Dosage: UNK, UNKNOWN FREQ.
     Route: 026

REACTIONS (2)
  - Drug ineffective [Not Recovered/Not Resolved]
  - Off label use [Unknown]
